FAERS Safety Report 4423078-8 (Version None)
Quarter: 2004Q3

REPORT INFORMATION
  Report Type: 
  Country: None (occurrence: None)
  Receive Date: 20040810
  Receipt Date: 20040810
  Transmission Date: 20050211
  Serious: Yes (Life-Threatening)
  Sender: FDA-Public Use
  Company Number: None

PATIENT
  Age: 85 Year
  Sex: Male
  Weight: 82 kg

DRUGS (1)
  1. ALTEPLASE 1MG/ML GENENTECH [Suspect]
     Indication: CEREBROVASCULAR ACCIDENT
     Dosage: 73.4 1 HOUR INTRAVENOUS
     Route: 042
     Dates: start: 20040722, end: 20040722

REACTIONS (3)
  - HAEMORRHAGE INTRACRANIAL [None]
  - NAUSEA [None]
  - VOMITING [None]
